FAERS Safety Report 7487636-9 (Version None)
Quarter: 2011Q2

REPORT INFORMATION
  Report Type: 
  Country: None (occurrence: None)
  Receive Date: 20110518
  Receipt Date: 20091119
  Transmission Date: 20111010
  Serious: Yes (Death, Other)
  Sender: FDA-Public Use
  Company Number: US-BAYER-200939918NA

PATIENT
  Age: 85 Year
  Sex: Female
  Weight: 79.365 kg

DRUGS (13)
  1. TRASYLOL [Suspect]
     Dosage: 50 ML/HOUR INFUSION
     Route: 042
     Dates: start: 20040223, end: 20040223
  2. SYNTHROID [Concomitant]
     Dosage: 75 MCG
     Route: 048
  3. HEPARIN [Concomitant]
     Dosage: 1000UNITS IN 1000 ML
     Route: 042
  4. MANNITOL [Concomitant]
     Route: 042
  5. ZOCOR [Concomitant]
     Dosage: 20 MG, QD
     Route: 048
  6. TOPROL-XL [Concomitant]
     Dosage: 100 MG, QD
     Route: 048
  7. TRASYLOL [Suspect]
     Indication: CORONARY ARTERY BYPASS
     Dosage: 100 ML, BOLUS
     Route: 042
     Dates: start: 20040223, end: 20040223
  8. LASIX [Concomitant]
     Dosage: 40 MG, BID
     Route: 048
  9. NITROGLYCERIN [Concomitant]
     Dosage: 0.4 MG, PRN
     Route: 048
  10. DOPAMINE HCL [Concomitant]
     Dosage: 6MCG/KG/MIN
     Route: 042
  11. ACETYLSALICYLIC ACID SRT [Concomitant]
     Dosage: 81 MG, QD
     Route: 048
  12. IMDUR [Concomitant]
     Dosage: 30 MG, BID
     Route: 048
  13. COZAAR [Concomitant]
     Dosage: 50 MG, QD
     Route: 048

REACTIONS (14)
  - UNEVALUABLE EVENT [None]
  - FEAR [None]
  - RENAL INJURY [None]
  - MULTI-ORGAN FAILURE [None]
  - STRESS [None]
  - ANHEDONIA [None]
  - RENAL IMPAIRMENT [None]
  - RENAL FAILURE [None]
  - RENAL FAILURE CHRONIC [None]
  - EMOTIONAL DISTRESS [None]
  - ANXIETY [None]
  - INJURY [None]
  - DEATH [None]
  - PAIN [None]
